FAERS Safety Report 9642973 (Version 2)
Quarter: 2013Q4

REPORT INFORMATION
  Report Type: Spontaneous
  Country: FR (occurrence: FR)
  Receive Date: 20131024
  Receipt Date: 20131125
  Transmission Date: 20140711
  Serious: Yes (Hospitalization)
  Sender: FDA-Public Use
  Company Number: FR-009507513-1310FRA007713

PATIENT
  Sex: Male
  Weight: 85 kg

DRUGS (4)
  1. SINEMET UNSCORED TABLET [Suspect]
     Indication: PARKINSON^S DISEASE
     Dosage: 1 DF, QID
     Route: 048
  2. SINEMET UNSCORED TABLET [Suspect]
     Dosage: UNK
  3. TRIVASTAL [Concomitant]
     Dosage: 1 DF, QID
  4. OTRASEL [Concomitant]
     Dosage: 1 DF, QAM

REACTIONS (3)
  - Local swelling [Recovered/Resolved with Sequelae]
  - Abasia [Unknown]
  - Hallucination [Unknown]
